FAERS Safety Report 24001984 (Version 2)
Quarter: 2024Q3

REPORT INFORMATION
  Report Type: Report from Study
  Country: US (occurrence: US)
  Receive Date: 20240622
  Receipt Date: 20240704
  Transmission Date: 20241017
  Serious: No
  Sender: AMGEN
  Company Number: US-AMGEN-USASP2024121431

PATIENT
  Age: 47 Year
  Sex: Male

DRUGS (3)
  1. OTEZLA [Suspect]
     Active Substance: APREMILAST
     Indication: Psoriasis
     Dosage: 30 MILLIGRAM, BID
     Route: 065
  2. OTEZLA [Suspect]
     Active Substance: APREMILAST
     Dosage: 30 MILLIGRAM, BID
     Route: 065
     Dates: end: 2024
  3. OTEZLA [Suspect]
     Active Substance: APREMILAST
     Dosage: UNK HCP HAD PRESCRIBED HIM TO TAKE IT 30MG 1 PER DAY AS NEEDED FOR FLARE UPS, BUT THAT HE MADE THE D
     Route: 065
     Dates: start: 2024

REACTIONS (10)
  - Psoriasis [Unknown]
  - Expired product administered [Unknown]
  - Affective disorder [Unknown]
  - Nausea [Unknown]
  - Diarrhoea [Unknown]
  - Intentional product misuse [Unknown]
  - Arthralgia [Not Recovered/Not Resolved]
  - Therapy interrupted [Unknown]
  - Off label use [Unknown]
  - Wrong technique in product usage process [Unknown]

NARRATIVE: CASE EVENT DATE: 20240101
